FAERS Safety Report 4754163-9 (Version None)
Quarter: 2005Q3

REPORT INFORMATION
  Report Type: 
  Country: None (occurrence: None)
  Receive Date: 20050826
  Receipt Date: 19970411
  Transmission Date: 20060218
  Serious: Yes (Other)
  Sender: FDA-Public Use
  Company Number: JP-ABBOTT-05P-087-0306464-00

PATIENT
  Age: 76 Year
  Sex: Female

DRUGS (1)
  1. FERO GRADUMET [Suspect]
     Indication: IRON DEFICIENCY ANAEMIA
     Route: 048
     Dates: end: 19970212

REACTIONS (3)
  - FOREIGN BODY TRAUMA [None]
  - GASTROINTESTINAL MUCOSAL NECROSIS [None]
  - OESOPHAGEAL ULCER [None]
